FAERS Safety Report 16449138 (Version 1)
Quarter: 2019Q2

REPORT INFORMATION
  Report Type: Spontaneous
  Country: US (occurrence: US)
  Receive Date: 20190619
  Receipt Date: 20190619
  Transmission Date: 20190711
  Serious: Yes (Hospitalization, Other)
  Sender: FDA-Public Use
  Company Number: US-MALLINCKRODT-T201904394

PATIENT
  Age: 42 Year
  Sex: Female

DRUGS (3)
  1. HYDROCODONE/ACETAMINOPHEN [Suspect]
     Active Substance: ACETAMINOPHEN\HYDROCODONE
     Dosage: UNK (GAVE HER ENOUGH FOR 1DAY)
     Route: 065
     Dates: start: 20190609
  2. HYDROCODONE/ACETAMINOPHEN [Suspect]
     Active Substance: ACETAMINOPHEN\HYDROCODONE
     Indication: PAIN
     Dosage: 1-2 TABLETS EVERY 6 HOURS AS NEEDED
     Route: 065
     Dates: start: 20190514, end: 20190607
  3. DIAZEPAM. [Concomitant]
     Active Substance: DIAZEPAM
     Indication: PRODUCT USED FOR UNKNOWN INDICATION
     Dosage: UNK
     Route: 065

REACTIONS (6)
  - Diarrhoea [Unknown]
  - Wrong product administered [Unknown]
  - Product dispensing error [Unknown]
  - Overdose [Unknown]
  - Pain [Unknown]
  - Breast prosthesis removal [Unknown]

NARRATIVE: CASE EVENT DATE: 2019
